FAERS Safety Report 9748548 (Version 3)
Quarter: 2014Q1

REPORT INFORMATION
  Report Type: Report from Study
  Country: CA (occurrence: CA)
  Receive Date: 20131212
  Receipt Date: 20140121
  Transmission Date: 20141002
  Serious: Yes (Other)
  Sender: FDA-Public Use
  Company Number: CA-ALEXION PHARMACEUTICALS INC.-A201303987

PATIENT
  Age: 53 Year
  Sex: Male

DRUGS (9)
  1. SOLIRIS [Suspect]
     Indication: PAROXYSMAL NOCTURNAL HAEMOGLOBINURIA
     Dosage: 600 MG, QW
     Route: 042
     Dates: start: 20090617, end: 20090708
  2. SOLIRIS [Suspect]
     Dosage: 900 MG, Q2W
     Route: 042
     Dates: start: 20090715
  3. LITHIUM [Concomitant]
     Indication: BIPOLAR DISORDER
     Dosage: 300 MG, QD
     Route: 048
     Dates: start: 198001
  4. FOLIC ACID [Concomitant]
     Indication: SUPPLEMENTATION THERAPY
     Dosage: 5 MG, QD
     Route: 048
     Dates: start: 20080707
  5. CALCIUM [Concomitant]
     Indication: SUPPLEMENTATION THERAPY
     Dosage: 1 DF, QD
     Route: 048
     Dates: start: 20090101
  6. VITAMIN D [Concomitant]
     Indication: SUPPLEMENTATION THERAPY
     Dosage: 1 DF, QD
     Route: 048
     Dates: start: 20090101
  7. MULTIVITAMIN [Concomitant]
     Indication: SUPPLEMENTATION THERAPY
     Dosage: 1 DF, QD
     Route: 048
  8. AZITHROMYCIN [Concomitant]
     Indication: PNEUMONIA
     Dosage: 500 MG, UNK
     Route: 048
     Dates: start: 20131127
  9. AZITHROMYCIN [Concomitant]
     Dosage: 250 MG, BID
     Route: 048

REACTIONS (4)
  - Pneumonia [Recovered/Resolved]
  - Haemoglobin decreased [Recovered/Resolved]
  - Back pain [Recovered/Resolved]
  - Fatigue [Recovered/Resolved]
